FAERS Safety Report 16981335 (Version 4)
Quarter: 2020Q1

REPORT INFORMATION
  Report Type: Spontaneous
  Country: SE (occurrence: SE)
  Receive Date: 20191031
  Receipt Date: 20200128
  Transmission Date: 20200409
  Serious: Yes (Other)
  Sender: FDA-Public Use
  Company Number: SE-BEH-2019108511

PATIENT
  Age: 58 Year
  Sex: Male
  Weight: 77.7 kg

DRUGS (17)
  1. ERGENYL [Concomitant]
     Active Substance: VALPROIC ACID
  2. LAMOTRIGIN [Concomitant]
     Active Substance: LAMOTRIGINE
  3. MOVICOL [Concomitant]
     Active Substance: POLYETHYLENE GLYCOL 3350\POTASSIUM CHLORIDE\SODIUM BICARBONATE\SODIUM CHLORIDE
  4. STILNOCT [Concomitant]
     Active Substance: ZOLPIDEM TARTRATE
  5. CITODON [CODEINE PHOSPHATE HEMIHYDRATE;PARACETAMOL] [Concomitant]
     Active Substance: ACETAMINOPHEN\CODEINE PHOSPHATE
  6. GABAPENTIN. [Concomitant]
     Active Substance: GABAPENTIN
  7. PREGABALIN. [Concomitant]
     Active Substance: PREGABALIN
  8. OMEPRAZOLE. [Concomitant]
     Active Substance: OMEPRAZOLE
  9. HIZENTRA [Suspect]
     Active Substance: HUMAN IMMUNOGLOBULIN G
     Indication: SECONDARY IMMUNODEFICIENCY
     Dosage: 8 GRAM/40 ML, QW
     Route: 065
     Dates: start: 201905
  10. MIRTAZAPIN [Concomitant]
     Active Substance: MIRTAZAPINE
  11. PARACETAMOL [Concomitant]
     Active Substance: ACETAMINOPHEN
  12. LERGIGAN [CHLORPHENAMINE MALEATE] [Concomitant]
  13. HIZENTRA [Suspect]
     Active Substance: HUMAN IMMUNOGLOBULIN G
     Indication: LYMPHOMA
     Dosage: 8 GRAM, TOT
     Route: 065
     Dates: start: 20191018, end: 20191018
  14. FELODIPIN [Concomitant]
     Active Substance: FELODIPINE
  15. IMOVANE [Concomitant]
     Active Substance: ZOPICLONE
  16. CANDESARTAN. [Concomitant]
     Active Substance: CANDESARTAN
  17. ACETYLCYSTEIN [Concomitant]
     Active Substance: ACETYLCYSTEINE

REACTIONS (3)
  - Abdominal pain [Recovered/Resolved]
  - Vomiting [Recovered/Resolved]
  - Abdominal pain upper [Recovered/Resolved]

NARRATIVE: CASE EVENT DATE: 20191019
